FAERS Safety Report 19031923 (Version 6)
Quarter: 2025Q3

REPORT INFORMATION
  Report Type: Report from Study
  Country: US (occurrence: US)
  Receive Date: 20210319
  Receipt Date: 20250811
  Transmission Date: 20251021
  Serious: Yes (Other)
  Sender: TAKEDA
  Company Number: US-TAKEDA-US202004642

PATIENT
  Sex: Male

DRUGS (3)
  1. IDURSULFASE [Suspect]
     Active Substance: IDURSULFASE
     Indication: Mucopolysaccharidosis II
     Dosage: UNK UNK, 1/WEEK
     Dates: start: 20061026
  2. IDURSULFASE [Suspect]
     Active Substance: IDURSULFASE
     Dosage: UNK UNK, 1/WEEK
     Dates: start: 200610
  3. IDURSULFASE [Suspect]
     Active Substance: IDURSULFASE
     Dosage: 0.05 MG/KG, 1/WEEK

REACTIONS (7)
  - Influenza [Recovered/Resolved]
  - Visual impairment [Unknown]
  - Blood pressure decreased [Not Recovered/Not Resolved]
  - COVID-19 [Unknown]
  - Fatigue [Recovered/Resolved]
  - Inappropriate schedule of product administration [Recovered/Resolved]
  - Product dose omission issue [Unknown]
